FAERS Safety Report 12991047 (Version 1)
Quarter: 2016Q4

REPORT INFORMATION
  Report Type: Spontaneous
  Country: US (occurrence: US)
  Receive Date: 20161130
  Receipt Date: 20161130
  Transmission Date: 20170207
  Serious: Yes (Other)
  Sender: FDA-Public Use
  Company Number: None

PATIENT
  Age: 94 Year
  Sex: Female
  Weight: 54 kg

DRUGS (13)
  1. RED YEAST RICE [Concomitant]
     Active Substance: DIETARY SUPPLEMENT
  2. HOMOCYSTEINE FACTORS [Concomitant]
  3. OLIVE LEAF EXTRACT [Concomitant]
  4. SELENIUM [Concomitant]
     Active Substance: SELENIUM
  5. BACKAID MAX [Suspect]
     Active Substance: ACETAMINOPHEN\PAMABROM
     Indication: SKIN CANCER
     Dosage: ?          QUANTITY:2 TABLET(S);?
     Route: 048
     Dates: start: 20161130, end: 20161130
  6. ALPRAZOLAM. [Concomitant]
     Active Substance: ALPRAZOLAM
  7. BETAINE HCL [Concomitant]
  8. LEVOTHYROXIN [Concomitant]
     Active Substance: LEVOTHYROXINE
  9. LUTEIN + ZEAXANTHIN [Concomitant]
  10. ACTIVE CALCIUM [Concomitant]
  11. ESSENTIAL ENZYMES [Concomitant]
  12. VITAMIN D [Concomitant]
     Active Substance: CHOLECALCIFEROL
  13. SENNA [Concomitant]
     Active Substance: SENNA LEAF\SENNOSIDES\SENNOSIDES A AND B

REACTIONS (1)
  - Dystonia [None]

NARRATIVE: CASE EVENT DATE: 20161130
